FAERS Safety Report 21376472 (Version 1)
Quarter: 2022Q3

REPORT INFORMATION
  Report Type: Spontaneous
  Country: US (occurrence: None)
  Receive Date: 20220924
  Receipt Date: 20220924
  Transmission Date: 20221027
  Serious: Yes (Other)
  Sender: FDA-Public Use
  Company Number: None

PATIENT
  Age: 25 Year
  Sex: Female

DRUGS (2)
  1. AMBRISENTAN [Suspect]
     Active Substance: AMBRISENTAN
     Indication: Pulmonary arterial hypertension
     Dosage: FREQUENCY : DAILY;?
     Route: 048
     Dates: start: 20170418
  2. TADALAFIL [Suspect]
     Active Substance: TADALAFIL

REACTIONS (3)
  - Dyspnoea [None]
  - Chronic obstructive pulmonary disease [None]
  - Panic attack [None]

NARRATIVE: CASE EVENT DATE: 20220920
